FAERS Safety Report 4893672-9 (Version None)
Quarter: 2006Q1

REPORT INFORMATION
  Report Type: 
  Country: None (occurrence: None)
  Receive Date: 20060124
  Receipt Date: 20060112
  Transmission Date: 20060701
  Serious: Yes (Life-Threatening)
  Sender: FDA-Public Use
  Company Number: 2006008267

PATIENT
  Age: 81 Year
  Sex: Female

DRUGS (8)
  1. FRAGMIN [Suspect]
     Indication: CARDIAC ANEURYSM
     Dosage: 20000 I.U. (10000 I.U., 2 IN 1D), ORAL
     Route: 048
     Dates: start: 20051129, end: 20051206
  2. WARFARIN SODIUM [Suspect]
     Indication: CARDIAC ANEURYSM
     Dosage: ORAL
     Route: 048
     Dates: start: 20051205, end: 20051206
  3. ALBYL-E (ACETYLSALICYLIC ACID, MAGENSIUM OXIDE) [Concomitant]
  4. SELO-ZOK (METOROLOL SUCCINATE) [Concomitant]
  5. MONOKET OD (ISOSORBIDE MONONITRATE) [Concomitant]
  6. LACTULOSE [Concomitant]
  7. ENALAPRIL MALEATE [Concomitant]
  8. LASIX RETARD (FUROSEMIDE) [Concomitant]

REACTIONS (1)
  - ABDOMINAL HAEMATOMA [None]
